FAERS Safety Report 6241649-3 (Version None)
Quarter: 2009Q2

REPORT INFORMATION
  Report Type: 
  Country: None (occurrence: None)
  Receive Date: 20090623
  Receipt Date: 20051209
  Transmission Date: 20091009
  Serious: Yes (Hospitalization)
  Sender: FDA-Public Use
  Company Number: MX-ROCHE-598521

PATIENT
  Sex: Male

DRUGS (24)
  1. DACLIZUMAB [Suspect]
     Route: 042
  2. MYCOPHENOLATE MOFETIL [Suspect]
     Route: 048
     Dates: start: 20040323
  3. MYCOPHENOLATE MOFETIL [Suspect]
     Route: 048
     Dates: start: 20040407
  4. MYCOPHENOLATE MOFETIL [Suspect]
     Route: 048
     Dates: start: 20040419
  5. MYCOPHENOLATE MOFETIL [Suspect]
     Route: 048
     Dates: start: 20040825
  6. MYCOPHENOLATE MOFETIL [Suspect]
     Route: 048
     Dates: start: 20041021
  7. MYCOPHENOLATE MOFETIL [Suspect]
     Route: 048
     Dates: start: 20041021
  8. MYCOPHENOLATE MOFETIL [Suspect]
     Route: 048
     Dates: start: 20050224
  9. TACROLIMUS [Suspect]
     Route: 048
     Dates: start: 20040409, end: 20040824
  10. TACROLIMUS [Suspect]
     Route: 048
     Dates: start: 20040825, end: 20041006
  11. TACROLIMUS [Suspect]
     Route: 048
     Dates: start: 20041007
  12. CYCLOSPORINE [Suspect]
     Route: 048
     Dates: start: 20040323, end: 20040409
  13. PREDNISONE [Suspect]
     Route: 048
     Dates: start: 20040324
  14. METHYLPREDNISOLONE [Suspect]
     Route: 042
     Dates: start: 20040323
  15. CALCIUM CARBONATE [Concomitant]
     Route: 048
     Dates: start: 20040327
  16. CALCIUM CARBONATE [Concomitant]
     Route: 048
     Dates: start: 20040521
  17. CALCIUM CARBONATE [Concomitant]
     Route: 048
     Dates: start: 20040802
  18. FUROSEMIDE [Concomitant]
     Route: 048
     Dates: start: 20040414
  19. NIFEDIPINE [Concomitant]
     Route: 048
     Dates: start: 20040327
  20. PRAVASTATIN [Concomitant]
     Route: 048
     Dates: start: 20040401
  21. RANITIDINE [Concomitant]
     Route: 042
     Dates: start: 20040323, end: 20040326
  22. RANITIDINE [Concomitant]
     Route: 048
     Dates: start: 20040327
  23. SULFAMETHOXAZOLE AND TRIMETHOPRIM [Concomitant]
     Dosage: DRUG: SULFAMETHOXASOLE
     Route: 048
     Dates: start: 20040327, end: 20040414
  24. TRIMETHOPRIM [Concomitant]
     Route: 048
     Dates: start: 20040327, end: 20040414

REACTIONS (1)
  - VARICELLA [None]
